FAERS Safety Report 19875824 (Version 2)
Quarter: 2022Q1

REPORT INFORMATION
  Report Type: Report from Study
  Country: CA (occurrence: CA)
  Receive Date: 20210924
  Receipt Date: 20220317
  Transmission Date: 20220423
  Serious: Yes (Disabling, Other)
  Sender: FDA-Public Use
  Company Number: CA-SAARTEMIS-SAC202012030155

PATIENT
  Age: 36 Year
  Sex: Female

DRUGS (11)
  1. TERIFLUNOMIDE [Suspect]
     Active Substance: TERIFLUNOMIDE
     Indication: Relapsing-remitting multiple sclerosis
     Dosage: 14 MG, QD
     Route: 048
     Dates: start: 20151207
  2. COD LIVER OIL [Concomitant]
     Active Substance: COD LIVER OIL
  3. VITAMIN D NOS [Concomitant]
     Active Substance: VITAMIN D NOS
  4. VITAMIN C [Concomitant]
     Active Substance: ASCORBIC ACID
  5. VITAMINS NOS [Concomitant]
     Active Substance: VITAMINS
  6. ETHINYL ESTRADIOL\NORGESTIMATE [Concomitant]
     Active Substance: ETHINYL ESTRADIOL\NORGESTIMATE
  7. ALEVE [Concomitant]
     Active Substance: NAPROXEN SODIUM
  8. EVENING PRIMROSE [Concomitant]
  9. CRANBERRYNE [Concomitant]
     Indication: Supplementation therapy
  10. COD LIVER OIL [Concomitant]
     Active Substance: COD LIVER OIL
  11. OMEPRAZOLE [Concomitant]
     Active Substance: OMEPRAZOLE

REACTIONS (5)
  - Disability [Not Recovered/Not Resolved]
  - Kidney infection [Recovering/Resolving]
  - Pain [Not Recovered/Not Resolved]
  - Cystitis [Recovering/Resolving]
  - Exposure to SARS-CoV-2 [Not Recovered/Not Resolved]

NARRATIVE: CASE EVENT DATE: 20200901
